FAERS Safety Report 15433664 (Version 1)
Quarter: 2018Q3

REPORT INFORMATION
  Report Type: Spontaneous
  Country: US (occurrence: US)
  Receive Date: 20180921
  Receipt Date: 20180921
  Transmission Date: 20181010
  Serious: No
  Sender: FDA-Public Use
  Company Number: None

PATIENT
  Age: 54 Year
  Sex: Female
  Weight: 80.1 kg

DRUGS (9)
  1. DULOXETINE DR GENERIC FOR CYMBALTA, 30MG [Suspect]
     Active Substance: DULOXETINE
     Indication: PAIN
     Dosage: ?          QUANTITY:1 CAPSULE(S);?
     Route: 048
     Dates: start: 20180911, end: 20180914
  2. DULOXETINE DR GENERIC FOR CYMBALTA, 30MG [Suspect]
     Active Substance: DULOXETINE
     Indication: DEPRESSION
     Dosage: ?          QUANTITY:1 CAPSULE(S);?
     Route: 048
     Dates: start: 20180911, end: 20180914
  3. VITAMIN D3 [Concomitant]
     Active Substance: CHOLECALCIFEROL
  4. NEURONTIN [Concomitant]
     Active Substance: GABAPENTIN
  5. BISACODYL. [Concomitant]
     Active Substance: BISACODYL
  6. LEXAPRO [Concomitant]
     Active Substance: ESCITALOPRAM OXALATE
  7. ARMOUR THYROID [Concomitant]
     Active Substance: THYROID, PORCINE
  8. OXYCODINE [Concomitant]
  9. VITAMIN B12 [Concomitant]
     Active Substance: CYANOCOBALAMIN

REACTIONS (7)
  - Nausea [None]
  - Abdominal pain upper [None]
  - Dysuria [None]
  - Neck pain [None]
  - Insomnia [None]
  - Tremor [None]
  - Paraesthesia [None]

NARRATIVE: CASE EVENT DATE: 20180915
